FAERS Safety Report 6524492-7 (Version None)
Quarter: 2010Q1

REPORT INFORMATION
  Report Type: 
  Country: None (occurrence: None)
  Receive Date: 20100104
  Receipt Date: 20091229
  Transmission Date: 20100710
  Serious: Yes (Other)
  Sender: FDA-Public Use
  Company Number: US-RB-000017-10

PATIENT
  Age: 52 Year
  Sex: Male
  Weight: 102.15 kg

DRUGS (2)
  1. MUCINEX [Suspect]
     Indication: RESPIRATORY TRACT CONGESTION
     Dosage: 2 TABLETS TAKEN TOTAL
     Route: 048
     Dates: start: 20091229
  2. MUCINEX [Suspect]
     Dosage: 2 TABLETS TAKEN TOTAL
     Route: 048
     Dates: start: 20091229

REACTIONS (1)
  - HAEMOPTYSIS [None]
